FAERS Safety Report 23172318 (Version 1)
Quarter: 2023Q4

REPORT INFORMATION
  Report Type: Spontaneous
  Country: IT (occurrence: IT)
  Receive Date: 20231110
  Receipt Date: 20231110
  Transmission Date: 20240110
  Serious: Yes (Hospitalization, Other)
  Sender: FDA-Public Use
  Company Number: IT-MINISAL02-931773

PATIENT
  Age: 24 Year
  Sex: Female

DRUGS (2)
  1. OLANZAPINE [Suspect]
     Active Substance: OLANZAPINE
     Indication: Anxiety
     Dosage: DOSAGE: 14 UNIT OF DOSAGE: UNITA DOSAGE FREQUENCY OF ADMINISTRATION: TOTAL VIA ADMINISTRATION: ORAL
     Route: 048
  2. MIRTAZAPINE [Suspect]
     Active Substance: MIRTAZAPINE
     Indication: Anxiety
     Dosage: DOSAGE: 15 UNIT OF DOSAGE: UNITA DOSAGE FREQUENCY OF ADMINISTRATION: TOTAL VIA ADMINISTRATION: ORAL
     Route: 048

REACTIONS (3)
  - Mood altered [Recovering/Resolving]
  - Asthenia [Recovering/Resolving]
  - Drug abuse [Recovered/Resolved]

NARRATIVE: CASE EVENT DATE: 20230609
